FAERS Safety Report 4462418-0 (Version None)
Quarter: 2004Q3

REPORT INFORMATION
  Report Type: 
  Country: None (occurrence: None)
  Receive Date: 20040924
  Receipt Date: 20040913
  Transmission Date: 20050211
  Serious: Yes (Life-Threatening, Hospitalization)
  Sender: FDA-Public Use
  Company Number: A01200404415

PATIENT
  Age: 61 Year
  Sex: Female

DRUGS (1)
  1. ELOXATIN [Suspect]
     Indication: COLON CANCER RECURRENT
     Dosage: 195 MG OTHER
     Route: 042
     Dates: start: 20040810, end: 20040810

REACTIONS (5)
  - FEELING ABNORMAL [None]
  - HYPERSENSITIVITY [None]
  - MUSCLE CRAMP [None]
  - PARAESTHESIA [None]
  - THROAT TIGHTNESS [None]
